FAERS Safety Report 5498053-5 (Version None)
Quarter: 2007Q4

REPORT INFORMATION
  Report Type: 
  Country: None (occurrence: None)
  Receive Date: 20071018
  Receipt Date: 20061121
  Transmission Date: 20080405
  Serious: Yes (Other)
  Sender: FDA-Public Use
  Company Number: 2005151220

PATIENT
  Sex: Female

DRUGS (10)
  1. NEURONTIN [Suspect]
     Indication: DEPRESSION
     Dosage: 600 MG (300 MG, 2 IN 1 D), ORAL
     Route: 048
     Dates: start: 20030805
  2. NEURONTIN [Suspect]
     Indication: PAIN
     Dosage: 600 MG (300 MG, 2 IN 1 D), ORAL
     Route: 048
     Dates: start: 20030805
  3. CELEBREX [Concomitant]
  4. DARVOCET-N 100 [Concomitant]
  5. ELAVIL [Concomitant]
  6. IBUPROFEN [Concomitant]
  7. PIROXICAM [Concomitant]
  8. CYCLOBENZAPRINE [Concomitant]
  9. LIDOCAINE [Concomitant]
  10. KETOPROFEN [Concomitant]

REACTIONS (2)
  - DRUG INEFFECTIVE [None]
  - SUICIDE ATTEMPT [None]
